FAERS Safety Report 24723092 (Version 1)
Quarter: 2024Q4

REPORT INFORMATION
  Report Type: Spontaneous
  Country: BR (occurrence: BR)
  Receive Date: 20241211
  Receipt Date: 20241211
  Transmission Date: 20250115
  Serious: Yes (Other)
  Sender: NOVARTIS
  Company Number: BR-002147023-NVSC2024BR214433

PATIENT
  Age: 56 Year
  Sex: Female
  Weight: 78 kg

DRUGS (1)
  1. COSENTYX [Suspect]
     Active Substance: SECUKINUMAB
     Indication: Product used for unknown indication
     Dosage: 150 MG
     Route: 065

REACTIONS (6)
  - Nail disorder [Not Recovered/Not Resolved]
  - Pain [Unknown]
  - Generalised oedema [Unknown]
  - Fatigue [Unknown]
  - Product availability issue [Unknown]
  - Product distribution issue [Unknown]
